FAERS Safety Report 20024566 (Version 1)
Quarter: 2021Q4

REPORT INFORMATION
  Report Type: Spontaneous
  Country: US (occurrence: US)
  Receive Date: 20211102
  Receipt Date: 20211102
  Transmission Date: 20220303
  Serious: Yes (Life-Threatening, Hospitalization, Other)
  Sender: FDA-Public Use
  Company Number: US-LUPIN PHARMACEUTICALS INC.-2021-21185

PATIENT
  Age: 60 Year
  Sex: Male

DRUGS (17)
  1. MORPHINE [Suspect]
     Active Substance: MORPHINE
     Indication: Neck pain
     Dosage: 4.7 MILLIGRAM, QD (A CERVICOTHORACIC INTRATHECAL PUMP(ITP) AS A CONTINUOUS INFUSION AT 0.31 ML/DAY)
     Route: 037
  2. MORPHINE [Suspect]
     Active Substance: MORPHINE
     Dosage: 7 MG/ML
     Route: 037
  3. MORPHINE [Suspect]
     Active Substance: MORPHINE
     Dosage: 1.85 MILLIGRAM, QD
     Route: 037
  4. FENTANYL [Suspect]
     Active Substance: FENTANYL
     Indication: General anaesthesia
     Dosage: 200 MICROGRAM
     Route: 042
  5. BUPIVACAINE [Suspect]
     Active Substance: BUPIVACAINE
     Indication: Neck pain
     Dosage: 3.1 MILLIGRAM, QD (A CERVICOTHORACIC INTRATHECAL PUMP(ITP) AS A CONTINUOUS INFUSION AT 0.31 ML/DAY)
     Route: 037
  6. BUPIVACAINE [Suspect]
     Active Substance: BUPIVACAINE
     Dosage: 5 MG/ML
     Route: 037
  7. BUPIVACAINE [Suspect]
     Active Substance: BUPIVACAINE
     Dosage: 1.3 MILLIGRAM, QD
     Route: 037
  8. BACLOFEN [Suspect]
     Active Substance: BACLOFEN
     Indication: Neck pain
     Dosage: 1.25 MILLIGRAM, QD (A CERVICOTHORACIC INTRATHECAL PUMP(ITP) AS A CONTINUOUS INFUSION AT 0.31 ML/DAY)
     Route: 037
  9. BACLOFEN [Suspect]
     Active Substance: BACLOFEN
     Dosage: 4 MG/ML
     Route: 037
  10. BACLOFEN [Suspect]
     Active Substance: BACLOFEN
     Dosage: 1.06 MILLIGRAM, QD
     Route: 037
  11. SUFENTANIL [Suspect]
     Active Substance: SUFENTANIL
     Indication: General anaesthesia
     Dosage: 23 MICROGRAM
     Route: 065
  12. KETAMINE [Suspect]
     Active Substance: KETAMINE
     Indication: General anaesthesia
     Dosage: 20 MILLIGRAM
     Route: 065
  13. NALOXONE [Concomitant]
     Active Substance: NALOXONE
     Indication: Mental disorder
     Dosage: 0.4 MILLIGRAM (1 HOUR) INFUSION
  14. NALOXONE [Concomitant]
     Active Substance: NALOXONE
     Indication: Respiratory depression
     Dosage: 0.5 MILLIGRAM (1 HOUR)
     Route: 065
  15. NALOXONE [Concomitant]
     Active Substance: NALOXONE
     Dosage: 0.3 MILLIGRAM (1 HOUR)
     Route: 065
  16. NALOXONE [Concomitant]
     Active Substance: NALOXONE
     Dosage: UNK (BOLUS)
     Route: 065
  17. NOREPINEPHRINE [Concomitant]
     Active Substance: NOREPINEPHRINE
     Indication: Hypotension
     Dosage: UNK
     Route: 065

REACTIONS (5)
  - Hypotension [Recovering/Resolving]
  - Hypercapnia [Recovering/Resolving]
  - Respiratory failure [Recovering/Resolving]
  - Respiratory depression [Recovering/Resolving]
  - Mental disorder [Recovering/Resolving]
